FAERS Safety Report 7886155-5 (Version None)
Quarter: 2011Q4

REPORT INFORMATION
  Report Type: 
  Country: None (occurrence: None)
  Receive Date: 20111102
  Receipt Date: 20110624
  Transmission Date: 20120403
  Serious: No
  Sender: FDA-Public Use
  Company Number: US-AMGEN-USASP2011032582

PATIENT
  Age: 46 Year
  Sex: Female

DRUGS (3)
  1. METHOTREXATE [Concomitant]
     Dosage: 6 MG, UNK
     Dates: start: 20110501
  2. PLAQUENIL [Concomitant]
     Dosage: UNK MG, UNK
     Dates: start: 20110501
  3. ENBREL [Suspect]
     Indication: RHEUMATOID ARTHRITIS
     Dosage: 50 MG, QWK
     Dates: start: 20110605

REACTIONS (2)
  - INJECTION SITE REACTION [None]
  - INJECTION SITE ERYTHEMA [None]
